FAERS Safety Report 9668282 (Version 3)
Quarter: 2013Q4

REPORT INFORMATION
  Report Type: Report from Study
  Country: CA (occurrence: CA)
  Receive Date: 20131104
  Receipt Date: 20131106
  Transmission Date: 20140711
  Serious: Yes (Hospitalization, Other)
  Sender: FDA-Public Use
  Company Number: CA-ABBVIE-13P-028-1156839-00

PATIENT
  Sex: Female
  Weight: 43.58 kg

DRUGS (2)
  1. HUMIRA [Suspect]
     Indication: CROHN^S DISEASE
     Route: 058
     Dates: start: 20081024, end: 2013
  2. PREDNISONE [Concomitant]
     Indication: PAIN MANAGEMENT
     Route: 048

REACTIONS (1)
  - Drug ineffective [Recovered/Resolved]
